FAERS Safety Report 21236272 (Version 1)
Quarter: 2022Q3

REPORT INFORMATION
  Report Type: Report from Study
  Country: CO (occurrence: CO)
  Receive Date: 20220822
  Receipt Date: 20220822
  Transmission Date: 20221027
  Serious: Yes (Life-Threatening, Hospitalization)
  Sender: FDA-Public Use
  Company Number: CO-ABBVIE-22K-036-4511451-00

PATIENT
  Age: 30 Year
  Sex: Male
  Weight: 50 kg

DRUGS (2)
  1. ZEMPLAR [Suspect]
     Active Substance: PARICALCITOL
     Indication: Hyperparathyroidism
     Route: 042
     Dates: start: 20201023
  2. ZEMPLAR [Suspect]
     Active Substance: PARICALCITOL
     Indication: Chronic kidney disease

REACTIONS (3)
  - Device issue [Not Recovered/Not Resolved]
  - Arteriovenous fistula site complication [Not Recovered/Not Resolved]
  - Inadequate haemodialysis [Not Recovered/Not Resolved]

NARRATIVE: CASE EVENT DATE: 20220801
